FAERS Safety Report 10370878 (Version 2)
Quarter: 2014Q3

REPORT INFORMATION
  Report Type: Spontaneous
  Country: US (occurrence: US)
  Receive Date: 20140808
  Receipt Date: 20140825
  Transmission Date: 20150326
  Serious: Yes (Other)
  Sender: FDA-Public Use
  Company Number: US-PFIZER INC-2014218108

PATIENT
  Age: 51 Year
  Sex: Female

DRUGS (6)
  1. DILANTIN-125 [Suspect]
     Active Substance: PHENYTOIN
     Indication: EPILEPSY
  2. DILANTIN-125 [Suspect]
     Active Substance: PHENYTOIN
     Indication: COMPLEX PARTIAL SEIZURES
     Dosage: UNK
  3. KEPPRA [Suspect]
     Active Substance: LEVETIRACETAM
     Indication: COMPLEX PARTIAL SEIZURES
     Dosage: UNK
     Dates: start: 201312
  4. LAMICTAL [Suspect]
     Active Substance: LAMOTRIGINE
     Indication: COMPLEX PARTIAL SEIZURES
     Dosage: UNK
     Dates: start: 2013
  5. KEPPRA [Suspect]
     Active Substance: LEVETIRACETAM
     Indication: EPILEPSY
  6. LAMICTAL [Suspect]
     Active Substance: LAMOTRIGINE
     Indication: EPILEPSY

REACTIONS (4)
  - Uterine disorder [Unknown]
  - Arthralgia [Unknown]
  - Convulsion [Unknown]
  - Complex partial seizures [Unknown]
